APPROVED DRUG PRODUCT: XYLO-PFAN
Active Ingredient: XYLOSE
Strength: 25GM/BOT
Dosage Form/Route: POWDER;ORAL
Application: N017605 | Product #001
Applicant: SAVAGE LABORATORIES INC DIV ALTANA INC
Approved: Approved Prior to Jan 1, 1982 | RLD: No | RS: No | Type: DISCN